FAERS Safety Report 24753130 (Version 3)
Quarter: 2025Q1

REPORT INFORMATION
  Report Type: Spontaneous
  Country: GB (occurrence: GB)
  Receive Date: 20241219
  Receipt Date: 20250304
  Transmission Date: 20250409
  Serious: Yes (Other)
  Sender: RANBAXY
  Company Number: GB-BRISTOL-MYERS SQUIBB COMPANY-2024-167059

PATIENT
  Age: 65 Year
  Sex: Male
  Weight: 70 kg

DRUGS (2)
  1. LENALIDOMIDE [Suspect]
     Active Substance: LENALIDOMIDE
     Indication: Plasma cell myeloma
     Route: 048
     Dates: start: 201909, end: 202102
  2. DARATUMUMAB [Concomitant]
     Active Substance: DARATUMUMAB
     Indication: Plasma cell myeloma
     Route: 065
     Dates: start: 201909, end: 202102

REACTIONS (2)
  - Abdominal sepsis [Unknown]
  - Plasma cell myeloma [Unknown]
